FAERS Safety Report 24067813 (Version 1)
Quarter: 2024Q3

REPORT INFORMATION
  Report Type: Spontaneous
  Country: US (occurrence: US)
  Receive Date: 20240710
  Receipt Date: 20240710
  Transmission Date: 20241017
  Serious: Yes (Hospitalization)
  Sender: NOVO NORDISK
  Company Number: US-NOVOPROD-1248527

PATIENT
  Age: 24 Year
  Sex: Male

DRUGS (3)
  1. WEGOVY [Suspect]
     Active Substance: SEMAGLUTIDE
     Indication: Product used for unknown indication
     Dosage: UNK
     Route: 058
  2. INGREZZA [Suspect]
     Active Substance: VALBENAZINE
     Indication: Dyskinesia
     Dosage: 40 MG, QD
     Route: 048
  3. INGREZZA [Suspect]
     Active Substance: VALBENAZINE
     Dosage: UNK9(RE-STARTED)
     Route: 048

REACTIONS (7)
  - Suicidal ideation [Unknown]
  - Restless legs syndrome [Unknown]
  - Vomiting [Unknown]
  - Diarrhoea [Unknown]
  - Depression [Unknown]
  - Vision blurred [Unknown]
  - Restlessness [Unknown]

NARRATIVE: CASE EVENT DATE: 20240606
